FAERS Safety Report 8210132-8 (Version None)
Quarter: 2012Q1

REPORT INFORMATION
  Report Type: 
  Country: None (occurrence: None)
  Receive Date: 20120314
  Receipt Date: 20110830
  Transmission Date: 20120608
  Serious: No
  Sender: FDA-Public Use
  Company Number: US-ASTRAZENECA-2011SE52267

PATIENT
  Sex: Female

DRUGS (5)
  1. NORVASC [Concomitant]
     Route: 065
  2. ULTRAVATE [Concomitant]
     Route: 065
  3. XANAX [Concomitant]
     Route: 065
  4. TOPROL-XL [Suspect]
     Dosage: GENERIC
     Route: 048
  5. DIABETA [Concomitant]
     Route: 065

REACTIONS (1)
  - ADVERSE EVENT [None]
